FAERS Safety Report 22619961 (Version 2)
Quarter: 2023Q2

REPORT INFORMATION
  Report Type: Spontaneous
  Country: KR (occurrence: KR)
  Receive Date: 20230620
  Receipt Date: 20230622
  Transmission Date: 20230721
  Serious: No
  Sender: FDA-Public Use
  Company Number: KR-PFIZER INC-PV202300104241

PATIENT
  Age: 12 Year
  Sex: Male

DRUGS (1)
  1. GENOTROPIN [Suspect]
     Active Substance: SOMATROPIN
     Indication: Short stature
     Dosage: 8 IU, FIVE TO SIX TIMES PER WEEK
     Dates: start: 20230319

REACTIONS (3)
  - Device leakage [Unknown]
  - Poor quality device used [Unknown]
  - Off label use [Unknown]

NARRATIVE: CASE EVENT DATE: 20230101
